FAERS Safety Report 6922586-5 (Version None)
Quarter: 2010Q3

REPORT INFORMATION
  Report Type: 
  Country: None (occurrence: None)
  Receive Date: 20100813
  Receipt Date: 20100804
  Transmission Date: 20110219
  Serious: Yes (Death)
  Sender: FDA-Public Use
  Company Number: IL-JNJFOC-20100802085

PATIENT
  Age: 8 Decade
  Sex: Female

DRUGS (2)
  1. PREZISTA [Suspect]
     Indication: HIV INFECTION
     Route: 048
  2. UNSPECIFIED MEDICATIONS FOR HIV [Concomitant]
     Indication: HIV INFECTION

REACTIONS (1)
  - SEPSIS [None]
